FAERS Safety Report 5921572-1 (Version None)
Quarter: 2008Q4

REPORT INFORMATION
  Report Type: 
  Country: None (occurrence: None)
  Receive Date: 20081017
  Receipt Date: 20080411
  Transmission Date: 20090506
  Serious: No
  Sender: FDA-Public Use
  Company Number: US-KINGPHARMUSA00001-K200800436

PATIENT

DRUGS (1)
  1. SYNERCID [Suspect]
     Route: 042

REACTIONS (2)
  - NO ADVERSE EVENT [None]
  - WRONG TECHNIQUE IN DRUG USAGE PROCESS [None]
